FAERS Safety Report 6895663-5 (Version None)
Quarter: 2010Q3

REPORT INFORMATION
  Report Type: 
  Country: None (occurrence: None)
  Receive Date: 20100728
  Receipt Date: 20100722
  Transmission Date: 20110219
  Serious: Yes (Congenital Anomaly, Other)
  Sender: FDA-Public Use
  Company Number: RB-02120-2010

PATIENT
  Sex: Male

DRUGS (1)
  1. SUBUTEX [Suspect]
     Indication: DRUG DEPENDENCE
     Dosage: 12 MG QD
     Dates: start: 20071101, end: 20080815

REACTIONS (3)
  - CEREBRAL CYST [None]
  - MATERNAL DRUGS AFFECTING FOETUS [None]
  - PITUITARY ENLARGEMENT [None]
